FAERS Safety Report 4676159-8 (Version None)
Quarter: 2005Q2

REPORT INFORMATION
  Report Type: 
  Country: None (occurrence: None)
  Receive Date: 20050527
  Receipt Date: 20050407
  Transmission Date: 20051028
  Serious: No
  Sender: FDA-Public Use
  Company Number: US-GLAXOSMITHKLINE-A0553181A

PATIENT
  Age: 44 Year
  Sex: Male

DRUGS (10)
  1. WELLBUTRIN XL [Suspect]
     Indication: DEPRESSION
     Dosage: 150MG PER DAY
     Route: 048
     Dates: start: 20040201, end: 20050101
  2. UNKNOWN MEDICATION [Concomitant]
  3. TOPROL-XL [Concomitant]
  4. POTASSIUM CHLORIDE [Concomitant]
  5. B12 INJECTION [Concomitant]
  6. DECA-DURABOLIN [Concomitant]
  7. VIDEX [Concomitant]
  8. VIRAMUNE [Concomitant]
  9. PAXIL [Concomitant]
  10. TESTOSTERONE [Concomitant]

REACTIONS (1)
  - GYNAECOMASTIA [None]
